FAERS Safety Report 8119089-1 (Version None)
Quarter: 2012Q1

REPORT INFORMATION
  Report Type: 
  Country: None (occurrence: None)
  Receive Date: 20120207
  Receipt Date: 20120123
  Transmission Date: 20120608
  Serious: Yes (Hospitalization, Other)
  Sender: FDA-Public Use
  Company Number: JP-SPECTRUM PHARMACEUTICALS, INC.-11-Z-JP-00302

PATIENT

DRUGS (20)
  1. ASPIRIN [Concomitant]
     Indication: PRODUCT USED FOR UNKNOWN INDICATION
     Dosage: UNK
     Route: 065
     Dates: start: 20100413, end: 20100602
  2. VICCLOX MEIJI (ACICLOVIR) [Concomitant]
     Indication: PRODUCT USED FOR UNKNOWN INDICATION
     Dosage: UNK
     Route: 065
     Dates: start: 20100610, end: 20100630
  3. SANDIMMUNE [Concomitant]
     Indication: PRODUCT USED FOR UNKNOWN INDICATION
     Dosage: UNK
     Route: 065
     Dates: start: 20100615, end: 20100630
  4. CARVEDILOL [Concomitant]
     Indication: PRODUCT USED FOR UNKNOWN INDICATION
     Dosage: UNK
     Route: 065
     Dates: start: 20100413
  5. SULFAMETHOXAZOLE [Concomitant]
     Indication: PRODUCT USED FOR UNKNOWN INDICATION
     Dosage: UNK
     Route: 065
     Dates: start: 20100602, end: 20100614
  6. RITUXIMAB [Suspect]
     Indication: FOLLICLE CENTRE LYMPHOMA, FOLLICULAR GRADE I, II, III STAGE III
     Dosage: 250 MG/M2, SINGLE
     Route: 041
     Dates: start: 20100413, end: 20100413
  7. LASIX [Concomitant]
     Indication: PRODUCT USED FOR UNKNOWN INDICATION
     Dosage: UNK
     Route: 065
     Dates: start: 20100413
  8. GLUCOSE INJECTION [Concomitant]
     Indication: PRODUCT USED FOR UNKNOWN INDICATION
     Dosage: UNK
     Route: 065
     Dates: start: 20100614, end: 20100615
  9. POLARAMINE                         /00043702/ [Concomitant]
     Indication: PREMEDICATION
     Dosage: UNK
     Route: 065
     Dates: start: 20100413, end: 20100413
  10. ACETAMINOPHEN [Concomitant]
     Indication: PREMEDICATION
     Dosage: UNK
     Route: 065
     Dates: start: 20100413, end: 20100413
  11. MORPHINE [Concomitant]
     Indication: PRODUCT USED FOR UNKNOWN INDICATION
     Dosage: UNK
     Route: 065
     Dates: start: 20100625, end: 20100629
  12. ZEVALIN [Suspect]
     Dosage: 130 MBQ, SINGLE
     Route: 042
     Dates: start: 20100406, end: 20100406
  13. RITUXIMAB [Suspect]
     Dosage: 250 MG/M2, SINGLE
     Route: 041
     Dates: start: 20100406, end: 20100406
  14. NEORAL [Concomitant]
     Indication: PRODUCT USED FOR UNKNOWN INDICATION
     Dosage: UNK
     Route: 065
     Dates: start: 20100701
  15. KYTRIL [Concomitant]
     Indication: PRODUCT USED FOR UNKNOWN INDICATION
     Dosage: UNK
     Route: 065
     Dates: start: 20100614, end: 20100615
  16. ENALAPRIL MALEATE [Concomitant]
     Indication: PRODUCT USED FOR UNKNOWN INDICATION
     Dosage: UNK
     Route: 065
     Dates: start: 20100413
  17. FLUDARA                            /01004602/ [Concomitant]
     Indication: PROPHYLAXIS AGAINST TRANSPLANT REJECTION
     Dosage: 38 MG, QD
     Route: 042
     Dates: start: 20100611, end: 20100614
  18. ALDACTONE [Concomitant]
     Indication: PRODUCT USED FOR UNKNOWN INDICATION
     Dosage: UNK
     Route: 065
     Dates: start: 20100413, end: 20100418
  19. ZEVALIN [Suspect]
     Indication: FOLLICLE CENTRE LYMPHOMA, FOLLICULAR GRADE I, II, III STAGE III
     Dosage: 767 MBQ, SINGLE
     Route: 042
     Dates: start: 20100413, end: 20100413
  20. ALKERAN [Concomitant]
     Indication: PROPHYLAXIS AGAINST TRANSPLANT REJECTION
     Dosage: 100 MG, QD
     Route: 042
     Dates: start: 20100614, end: 20100615

REACTIONS (11)
  - PLATELET COUNT DECREASED [None]
  - NEUTROPHIL PERCENTAGE INCREASED [None]
  - SEPSIS [None]
  - FUNGAL INFECTION [None]
  - WHITE BLOOD CELL COUNT DECREASED [None]
  - PROTEIN TOTAL DECREASED [None]
  - MALNUTRITION [None]
  - NEUTROPHIL COUNT DECREASED [None]
  - GASTROINTESTINAL INFECTION [None]
  - DIARRHOEA [None]
  - ANAEMIA [None]
